FAERS Safety Report 8170382-6 (Version None)
Quarter: 2012Q1

REPORT INFORMATION
  Report Type: 
  Country: None (occurrence: None)
  Receive Date: 20120228
  Receipt Date: 20120214
  Transmission Date: 20120608
  Serious: Yes (Life-Threatening)
  Sender: FDA-Public Use
  Company Number: FR-ELI_LILLY_AND_COMPANY-FR201202003817

PATIENT

DRUGS (12)
  1. PROZAC [Suspect]
     Dosage: 20 MG, BID
     Route: 064
     Dates: start: 20090706, end: 20100316
  2. OXAZEPAM [Concomitant]
     Indication: ANXIETY
     Dosage: 50 MG, TID
     Route: 064
     Dates: start: 20090706, end: 20100316
  3. OXAZEPAM [Concomitant]
     Dosage: 50 MG, TID
     Route: 064
     Dates: start: 20090706, end: 20100316
  4. TERCIAN [Concomitant]
     Indication: ANXIETY
     Dosage: 25 MG, QD
     Route: 064
     Dates: start: 20090706, end: 20100316
  5. PROZAC [Suspect]
     Indication: MENTAL DISORDER
     Dosage: 20 MG, BID
     Route: 064
     Dates: start: 20090706, end: 20100316
  6. METHADONE HCL [Concomitant]
     Dosage: 115 MG, QD
     Route: 064
     Dates: start: 20090706, end: 20100316
  7. ALCOHOL [Concomitant]
     Dosage: 1-2 DRINKS A DAY
     Route: 064
  8. RISPERDAL [Concomitant]
     Dosage: 2 MG, BID
     Route: 064
     Dates: start: 20090706, end: 20100316
  9. METHADONE HCL [Concomitant]
     Dosage: 115 MG, QD
     Route: 064
     Dates: start: 20090706, end: 20100316
  10. RISPERDAL [Concomitant]
     Indication: MENTAL DISORDER
     Dosage: 2 MG, BID
     Route: 064
     Dates: start: 20090706, end: 20100316
  11. ALCOHOL [Concomitant]
     Dosage: 1-2 DRINKS A DAY
     Route: 064
  12. TERCIAN [Concomitant]
     Dosage: 25 MG, QD
     Route: 064
     Dates: start: 20090706, end: 20100316

REACTIONS (3)
  - FOETAL EXPOSURE DURING PREGNANCY [None]
  - FOETAL HEART RATE DECREASED [None]
  - NEONATAL RESPIRATORY ARREST [None]
